FAERS Safety Report 24722340 (Version 1)
Quarter: 2024Q4

REPORT INFORMATION
  Report Type: Spontaneous
  Country: ES (occurrence: ES)
  Receive Date: 20241211
  Receipt Date: 20241211
  Transmission Date: 20250114
  Serious: Yes (Other)
  Sender: MYLAN
  Company Number: None

PATIENT
  Age: 33 Year
  Sex: Male

DRUGS (4)
  1. LEVOFLOXACIN [Suspect]
     Active Substance: LEVOFLOXACIN
     Indication: Respiratory tract infection
     Dosage: 500 MILLIGRAM, QD (24 HOURS)
     Route: 048
     Dates: start: 20231224, end: 20240102
  2. LINEZOLID [Suspect]
     Active Substance: LINEZOLID
     Indication: Respiratory tract infection
     Dosage: UNK , BID (1-0-1)
     Route: 048
     Dates: start: 20231229, end: 20240102
  3. QUETIAPINE [Suspect]
     Active Substance: QUETIAPINE
     Indication: Product used for unknown indication
     Dosage: 25 MILLIGRAM, QD (0-0-1, 24 HOURS)
     Route: 048
     Dates: start: 20231229, end: 20240102
  4. CEFTRIAXONE [Suspect]
     Active Substance: CEFTRIAXONE
     Indication: Respiratory tract infection
     Dosage: 2 GRAM, QD
     Route: 042
     Dates: start: 20231226, end: 20231226

REACTIONS (1)
  - Hepatitis cholestatic [Recovered/Resolved]

NARRATIVE: CASE EVENT DATE: 20240102
